FAERS Safety Report 4338739-9 (Version None)
Quarter: 2004Q2

REPORT INFORMATION
  Report Type: 
  Country: None (occurrence: None)
  Receive Date: 20040409
  Receipt Date: 20040331
  Transmission Date: 20050107
  Serious: Yes (Other)
  Sender: FDA-Public Use
  Company Number: GB-JNJFOC-20040400312

PATIENT
  Age: 55 Year
  Sex: Female

DRUGS (3)
  1. RISPERDAL [Suspect]
     Indication: SCHIZOPHRENIA
     Dosage: 6 MG, ORAL
     Route: 048
  2. ZOPICLONE (ZOPICLONE) [Concomitant]
  3. DIAZEPAM [Concomitant]

REACTIONS (3)
  - BLOOD BILIRUBIN INCREASED [None]
  - LEUKOPENIA [None]
  - NEUTROPENIA [None]
